FAERS Safety Report 4906134-7 (Version None)
Quarter: 2006Q1

REPORT INFORMATION
  Report Type: 
  Country: None (occurrence: None)
  Receive Date: 20060209
  Receipt Date: 20060130
  Transmission Date: 20060701
  Serious: Yes (Death)
  Sender: FDA-Public Use
  Company Number: US-BRISTOL-MYERS SQUIBB COMPANY-13263496

PATIENT
  Sex: Male

DRUGS (3)
  1. COUMADIN [Suspect]
  2. METAGLIP [Suspect]
     Dosage: DOSAGE FORM = 5.0 MG/500 MG
  3. PRAVACHOL [Suspect]

REACTIONS (1)
  - DEATH [None]
